FAERS Safety Report 6827012-2 (Version None)
Quarter: 2010Q3

REPORT INFORMATION
  Report Type: 
  Country: None (occurrence: None)
  Receive Date: 20100709
  Receipt Date: 20100628
  Transmission Date: 20110219
  Serious: Yes (Hospitalization)
  Sender: FDA-Public Use
  Company Number: US-BAYER-200930282NA

PATIENT
  Age: 20 Year
  Sex: Female
  Weight: 71 kg

DRUGS (5)
  1. YAZ [Suspect]
     Indication: PRODUCT USED FOR UNKNOWN INDICATION
     Route: 048
     Dates: start: 20070301, end: 20070401
  2. DOXYCYCLINE [Concomitant]
     Dosage: UNIT DOSE: 100 MG
     Route: 065
  3. HYDROCODONE WITH APAP [Concomitant]
     Dosage: 5/500. EVERY THREE YOURS AS NEEDED.
     Route: 065
  4. FLAGYL [Concomitant]
     Route: 065
  5. METHERGINE [Concomitant]
     Route: 065

REACTIONS (3)
  - PAIN [None]
  - PELVIC PAIN [None]
  - PULMONARY EMBOLISM [None]
